FAERS Safety Report 14961627 (Version 1)
Quarter: 2018Q2

REPORT INFORMATION
  Report Type: Other
  Country: US (occurrence: US)
  Receive Date: 20180601
  Receipt Date: 20180601
  Transmission Date: 20180711
  Serious: Yes (Death, Other)
  Sender: FDA-Public Use
  Company Number: US-WES PHARMA INC-2048822

PATIENT
  Age: 19 Month
  Sex: Female

DRUGS (1)
  1. OXYCODONE HYDROCHLORIDE. [Suspect]
     Active Substance: OXYCODONE HYDROCHLORIDE
     Indication: PRODUCT USED FOR UNKNOWN INDICATION
     Route: 065

REACTIONS (8)
  - Toxicity to various agents [Unknown]
  - Drug administered to patient of inappropriate age [Unknown]
  - Tachycardia [Unknown]
  - Acute lung injury [Unknown]
  - Pneumonia aspiration [Unknown]
  - Hypotension [Unknown]
  - Brain death [Fatal]
  - Depressed level of consciousness [Unknown]
